FAERS Safety Report 15965182 (Version 2)
Quarter: 2019Q2

REPORT INFORMATION
  Report Type: Report from Study
  Country: EG (occurrence: EG)
  Receive Date: 20190215
  Receipt Date: 20190523
  Transmission Date: 20190711
  Serious: Yes (Other)
  Sender: FDA-Public Use
  Company Number: EG-ROCHE-1961548

PATIENT
  Age: 57 Year
  Sex: Female
  Weight: 70 kg

DRUGS (16)
  1. HERCEPTIN [Suspect]
     Active Substance: TRASTUZUMAB
     Indication: BREAST CANCER
     Route: 042
     Dates: start: 20170224, end: 201803
  2. CONCOR [Concomitant]
     Active Substance: BISOPROLOL FUMARATE
     Indication: OFF LABEL USE
  3. PERJETA [Suspect]
     Active Substance: PERTUZUMAB
     Indication: BREAST CANCER
     Route: 042
     Dates: start: 20170224, end: 201710
  4. HERCEPTIN [Suspect]
     Active Substance: TRASTUZUMAB
     Indication: OFF LABEL USE
  5. TYKERB [Suspect]
     Active Substance: LAPATINIB DITOSYLATE
     Indication: BREAST CANCER
     Route: 065
     Dates: start: 201803
  6. TAXOL [Suspect]
     Active Substance: PACLITAXEL
     Indication: OFF LABEL USE
  7. CARBOPLATIN. [Suspect]
     Active Substance: CARBOPLATIN
     Indication: BREAST CANCER
     Route: 042
     Dates: start: 20170217, end: 201710
  8. CONCOR [Concomitant]
     Active Substance: BISOPROLOL FUMARATE
     Indication: HYPERTENSION
     Dosage: ONE TABLETS ONCE DAILY
     Route: 048
  9. XELODA [Suspect]
     Active Substance: CAPECITABINE
     Indication: BREAST CANCER
     Route: 065
     Dates: end: 201803
  10. TAXOL [Suspect]
     Active Substance: PACLITAXEL
     Indication: BREAST CANCER
     Route: 042
     Dates: start: 20170217, end: 201710
  11. CARBOPLATIN. [Suspect]
     Active Substance: CARBOPLATIN
     Indication: OFF LABEL USE
  12. XELODA [Suspect]
     Active Substance: CAPECITABINE
     Indication: OFF LABEL USE
  13. PERJETA [Suspect]
     Active Substance: PERTUZUMAB
     Indication: OFF LABEL USE
     Route: 042
     Dates: start: 20190205
  14. TYKERB [Suspect]
     Active Substance: LAPATINIB DITOSYLATE
     Indication: OFF LABEL USE
  15. JANUMET [Concomitant]
     Active Substance: METFORMIN HYDROCHLORIDE\SITAGLIPTIN PHOSPHATE
     Indication: DIABETES MELLITUS
     Dosage: ONE TABLET DAILY?50/1000
     Route: 048
  16. JANUMET [Concomitant]
     Active Substance: METFORMIN HYDROCHLORIDE\SITAGLIPTIN PHOSPHATE
     Indication: OFF LABEL USE

REACTIONS (15)
  - Cardiomegaly [Unknown]
  - Liver disorder [Unknown]
  - Immunodeficiency [Recovered/Resolved]
  - Metastases to central nervous system [Unknown]
  - Haemoglobin decreased [Unknown]
  - Heart rate irregular [Unknown]
  - Intentional product use issue [Unknown]
  - Weight decreased [Not Recovered/Not Resolved]
  - Off label use [Unknown]
  - Seizure [Unknown]
  - Disease recurrence [Not Recovered/Not Resolved]
  - Platelet count decreased [Recovered/Resolved]
  - Hypoaesthesia [Not Recovered/Not Resolved]
  - White blood cell count decreased [Unknown]
  - Coagulopathy [Recovered/Resolved]

NARRATIVE: CASE EVENT DATE: 20170708
